FAERS Safety Report 7767877-3 (Version None)
Quarter: 2011Q3

REPORT INFORMATION
  Report Type: 
  Country: None (occurrence: None)
  Receive Date: 20110922
  Receipt Date: 20110412
  Transmission Date: 20111222
  Serious: No
  Sender: FDA-Public Use
  Company Number: US-ASTRAZENECA-2011SE20863

PATIENT
  Age: 85 Year
  Sex: Female

DRUGS (12)
  1. SEROQUEL [Suspect]
     Route: 048
  2. SEROQUEL [Suspect]
     Indication: ANXIETY
     Dosage: THREE TIMES A DAY (12.5MG-12.5MG-25MG)
     Route: 048
  3. SEROQUEL [Suspect]
     Route: 048
  4. SEROQUEL [Suspect]
     Indication: PARKINSON'S DISEASE
     Dosage: THREE TIMES A DAY (12.5MG-12.5MG-25MG)
     Route: 048
  5. STALEVO 100 [Concomitant]
  6. REQUIP [Concomitant]
  7. ATIVAN [Concomitant]
  8. SEROQUEL [Suspect]
     Route: 048
  9. MIRALAX [Concomitant]
     Indication: CONSTIPATION
  10. SEROQUEL [Suspect]
     Indication: CONFUSIONAL STATE
     Dosage: THREE TIMES A DAY (12.5MG-12.5MG-25MG)
     Route: 048
  11. FERROUS SULFATE TAB [Concomitant]
  12. ZOLOFT [Concomitant]

REACTIONS (7)
  - SEDATION [None]
  - THERAPEUTIC RESPONSE UNEXPECTED [None]
  - OFF LABEL USE [None]
  - HALLUCINATION [None]
  - RESTLESS LEGS SYNDROME [None]
  - TREMOR [None]
  - FEELING ABNORMAL [None]
